FAERS Safety Report 6345291-5 (Version None)
Quarter: 2009Q3

REPORT INFORMATION
  Report Type: 
  Country: None (occurrence: None)
  Receive Date: 20090909
  Receipt Date: 20090901
  Transmission Date: 20100115
  Serious: Yes (Life-Threatening, Hospitalization)
  Sender: FDA-Public Use
  Company Number: DK-ASTRAZENECA-2009SE00750

PATIENT
  Age: 22832 Day
  Sex: Male
  Weight: 95 kg

DRUGS (5)
  1. ZOLADEX [Suspect]
     Indication: PROSTATE CANCER
     Dates: start: 20070125, end: 20090201
  2. SUTENT [Suspect]
     Indication: METASTATIC RENAL CELL CARCINOMA
     Dosage: 50 MILLIGRAM(S)
     Route: 048
     Dates: start: 20071024, end: 20090119
  3. NEXAVAR [Suspect]
     Indication: METASTATIC RENAL CELL CARCINOMA
     Dosage: 200 MILLIGRAM(S)
     Route: 048
     Dates: start: 20090217
  4. AMLODIPINE [Suspect]
     Indication: HYPERTENSION
     Dosage: 5 MILLIGRAM(S)
     Route: 048
     Dates: start: 20080401, end: 20090323
  5. CENTYL MED KALIUMKLORID [Concomitant]
     Route: 048

REACTIONS (1)
  - ANGIOEDEMA [None]
